FAERS Safety Report 9644099 (Version 3)
Quarter: 2014Q1

REPORT INFORMATION
  Report Type: Spontaneous
  Country: US (occurrence: US)
  Receive Date: 20131024
  Receipt Date: 20140107
  Transmission Date: 20141002
  Serious: Yes (Other)
  Sender: FDA-Public Use
  Company Number: US-UCBSA-100661

PATIENT
  Age: 35 Year
  Sex: Male
  Weight: 92 kg

DRUGS (1)
  1. CIMZIA [Suspect]
     Indication: CROHN^S DISEASE
     Dosage: INDUCTION DOSE: 400 MG, FREQUENCY 0-2-4
     Route: 058
     Dates: start: 20131007, end: 20131011

REACTIONS (4)
  - Local swelling [Recovered/Resolved]
  - Chest discomfort [Recovered/Resolved]
  - Rash [Recovered/Resolved]
  - Pruritus generalised [Recovered/Resolved]
